FAERS Safety Report 12918426 (Version 1)
Quarter: 2016Q4

REPORT INFORMATION
  Report Type: Spontaneous
  Country: US (occurrence: US)
  Receive Date: 20161107
  Receipt Date: 20161107
  Transmission Date: 20170207
  Serious: Yes (Other)
  Sender: FDA-Public Use
  Company Number: US-PFIZER INC-2016512774

PATIENT
  Age: 68 Year
  Sex: Female

DRUGS (2)
  1. IBUPROFEN. [Suspect]
     Active Substance: IBUPROFEN
     Dosage: UNK
  2. IBUPROFEN SODIUM. [Suspect]
     Active Substance: IBUPROFEN SODIUM

REACTIONS (2)
  - Drug hypersensitivity [Unknown]
  - Respiratory distress [Unknown]
